FAERS Safety Report 8561096-9 (Version None)
Quarter: 2012Q3

REPORT INFORMATION
  Report Type: 
  Country: None (occurrence: None)
  Receive Date: 20120802
  Receipt Date: 20120530
  Transmission Date: 20120928
  Serious: No
  Sender: FDA-Public Use
  Company Number: US-BRISTOL-MYERS SQUIBB COMPANY-16547549

PATIENT
  Age: 22 Year
  Sex: Male

DRUGS (3)
  1. NORVIR [Suspect]
  2. TRUVADA [Suspect]
  3. REYATAZ [Suspect]
     Indication: ACQUIRED IMMUNODEFICIENCY SYNDROME
     Route: 048
     Dates: start: 20120311, end: 20120402

REACTIONS (1)
  - ADVERSE EVENT [None]
